FAERS Safety Report 23981496 (Version 2)
Quarter: 2024Q4

REPORT INFORMATION
  Report Type: Report from Study
  Country: JP (occurrence: JP)
  Receive Date: 20240617
  Receipt Date: 20241022
  Transmission Date: 20250114
  Serious: Yes (Other)
  Sender: ALEXION PHARMACEUTICALS
  Company Number: 2024A131639

PATIENT
  Age: 56 Year
  Weight: 50 kg

DRUGS (30)
  1. CILGAVIMAB\TIXAGEVIMAB [Suspect]
     Active Substance: CILGAVIMAB\TIXAGEVIMAB
     Indication: COVID-19 prophylaxis
     Dosage: TIXAGEVIMAB 300 MG AND CILGAVIMAB 300 MG
  2. CILGAVIMAB\TIXAGEVIMAB [Suspect]
     Active Substance: CILGAVIMAB\TIXAGEVIMAB
     Dosage: TIXAGEVIMAB 300 MG AND CILGAVIMAB 300 MG
  3. CILGAVIMAB\TIXAGEVIMAB [Suspect]
     Active Substance: CILGAVIMAB\TIXAGEVIMAB
     Dosage: TIXAGEVIMAB 300 MG AND CILGAVIMAB 300 MG
  4. CILGAVIMAB\TIXAGEVIMAB [Suspect]
     Active Substance: CILGAVIMAB\TIXAGEVIMAB
     Dosage: TIXAGEVIMAB 300 MG AND CILGAVIMAB 300 MG
  5. LOSARTAN POTASSIUM [Concomitant]
     Active Substance: LOSARTAN POTASSIUM
     Indication: Hypertension
     Dosage: DOSE UNKNOWN
  6. LOSARTAN POTASSIUM [Concomitant]
     Active Substance: LOSARTAN POTASSIUM
     Dosage: DOSE UNKNOWN
  7. AMLODIPINE BESYLATE [Concomitant]
     Active Substance: AMLODIPINE BESYLATE
     Indication: Hypertension
     Dosage: DOSE UNKNOWN
  8. AMLODIPINE BESYLATE [Concomitant]
     Active Substance: AMLODIPINE BESYLATE
     Dosage: DOSE UNKNOWN
  9. SULFAMETHOXAZOLE\TRIMETHOPRIM [Concomitant]
     Active Substance: SULFAMETHOXAZOLE\TRIMETHOPRIM
     Indication: Prophylaxis
     Dosage: DOSE UNKNOWN
  10. SULFAMETHOXAZOLE\TRIMETHOPRIM [Concomitant]
     Active Substance: SULFAMETHOXAZOLE\TRIMETHOPRIM
     Dosage: DOSE UNKNOWN
  11. RITUXIMAB [Concomitant]
     Active Substance: RITUXIMAB
     Indication: Burkitt^s lymphoma
     Dosage: DOSE UNKNOWN
     Route: 065
  12. RITUXIMAB [Concomitant]
     Active Substance: RITUXIMAB
     Dosage: DOSE UNKNOWN
  13. RITUXIMAB [Concomitant]
     Active Substance: RITUXIMAB
     Dosage: DOSE UNKNOWN
     Route: 065
  14. RITUXIMAB [Concomitant]
     Active Substance: RITUXIMAB
     Dosage: DOSE UNKNOWN
  15. HYDROCHLOROTHIAZIDE\LOSARTAN POTASSIUM [Concomitant]
     Active Substance: HYDROCHLOROTHIAZIDE\LOSARTAN POTASSIUM
     Indication: Hypertension
     Dosage: DOSE UNKNOWN
  16. HYDROCHLOROTHIAZIDE\LOSARTAN POTASSIUM [Concomitant]
     Active Substance: HYDROCHLOROTHIAZIDE\LOSARTAN POTASSIUM
     Dosage: DOSE UNKNOWN
  17. AMLODIPINE BESYLATE [Concomitant]
     Active Substance: AMLODIPINE BESYLATE
     Indication: Hypertension
     Dosage: DOSE UNKNOWN
  18. AMLODIPINE BESYLATE [Concomitant]
     Active Substance: AMLODIPINE BESYLATE
     Dosage: DOSE UNKNOWN
  19. EVUSHELD [Suspect]
     Active Substance: CILGAVIMAB\TIXAGEVIMAB
     Indication: COVID-19 prophylaxis
     Dosage: TIXAGEVIMAB 300 MG AND CILGAVIMAB 300 MG
  20. EVUSHELD [Suspect]
     Active Substance: CILGAVIMAB\TIXAGEVIMAB
     Dosage: TIXAGEVIMAB 300 MG AND CILGAVIMAB 300 MG
  21. LOSARTAN POTASSIUM [Concomitant]
     Active Substance: LOSARTAN POTASSIUM
     Indication: Hypertension
     Dosage: DOSE UNKNOWN
  22. LOSARTAN POTASSIUM [Concomitant]
     Active Substance: LOSARTAN POTASSIUM
     Dosage: DOSE UNKNOWN
  23. AMLODIPINE [Concomitant]
     Active Substance: AMLODIPINE BESYLATE
     Indication: Hypertension
     Dosage: DOSE UNKNOWN
  24. AMLODIPINE [Concomitant]
     Active Substance: AMLODIPINE BESYLATE
     Dosage: DOSE UNKNOWN
  25. SULFAMETHOXAZOLE\TRIMETHOPRIM [Concomitant]
     Active Substance: SULFAMETHOXAZOLE\TRIMETHOPRIM
     Indication: Prophylaxis
     Dosage: DOSE UNKNOWN
  26. SULFAMETHOXAZOLE\TRIMETHOPRIM [Concomitant]
     Active Substance: SULFAMETHOXAZOLE\TRIMETHOPRIM
     Dosage: DOSE UNKNOWN
  27. NORVASC [Concomitant]
     Active Substance: AMLODIPINE BESYLATE
     Indication: Hypertension
     Dosage: DOSE UNKNOWN
  28. NORVASC [Concomitant]
     Active Substance: AMLODIPINE BESYLATE
     Dosage: DOSE UNKNOWN
  29. FILGRASTIM [Concomitant]
     Active Substance: FILGRASTIM
     Indication: Prophylaxis
     Dosage: DOSE UNKNOWN
  30. FILGRASTIM [Concomitant]
     Active Substance: FILGRASTIM
     Dosage: DOSE UNKNOWN
     Route: 065

REACTIONS (1)
  - Febrile neutropenia [Recovered/Resolved]
